FAERS Safety Report 8325090-5 (Version None)
Quarter: 2012Q2

REPORT INFORMATION
  Report Type: 
  Country: None (occurrence: None)
  Receive Date: 20120501
  Receipt Date: 20100329
  Transmission Date: 20120825
  Serious: No
  Sender: FDA-Public Use
  Company Number: US-TEVA-2010001807

PATIENT
  Sex: Female
  Weight: 4.54 kg

DRUGS (6)
  1. SIMVASTATIN [Concomitant]
  2. XANAX [Concomitant]
  3. NUVIGIL [Suspect]
     Indication: SLEEP APNOEA SYNDROME
     Dosage: 150 MILLIGRAM;
     Route: 048
     Dates: start: 20100308, end: 20100312
  4. PROZAC [Concomitant]
  5. NUVIGIL [Suspect]
     Dates: start: 20100316, end: 20100323
  6. SINGULAIR [Concomitant]

REACTIONS (4)
  - GLOSSODYNIA [None]
  - UNEVALUABLE EVENT [None]
  - HEART RATE IRREGULAR [None]
  - TONGUE PARALYSIS [None]
